FAERS Safety Report 21465178 (Version 2)
Quarter: 2023Q2

REPORT INFORMATION
  Report Type: Spontaneous
  Country: IT (occurrence: IT)
  Receive Date: 20221017
  Receipt Date: 20230602
  Transmission Date: 20230722
  Serious: Yes (Other)
  Sender: FDA-Public Use
  Company Number: IT-PFIZER INC-202201206832

PATIENT
  Age: 40 Year
  Sex: Female

DRUGS (2)
  1. TRUXIMA [Suspect]
     Active Substance: RITUXIMAB-ABBS
     Indication: B-cell lymphoma
     Dosage: 375 MG, INFUSION, FIRST FOUR DOSES EVERY 15 DAYS
  2. TRUXIMA [Suspect]
     Active Substance: RITUXIMAB-ABBS
     Dosage: 375 MG, INFUSION, ONES GIVEN EVERY MONTH

REACTIONS (4)
  - Oral lichenoid reaction [Not Recovered/Not Resolved]
  - Stomatitis [Unknown]
  - Rash papular [Unknown]
  - Arthralgia [Unknown]
